FAERS Safety Report 11739735 (Version 2)
Quarter: 2015Q4

REPORT INFORMATION
  Report Type: Spontaneous
  Country: US (occurrence: US)
  Receive Date: 20151110
  Receipt Date: 20151120
  Transmission Date: 20160304
  Serious: No
  Sender: FDA-Public Use
  Company Number: US-ELI_LILLY_AND_COMPANY-US201209003192

PATIENT
  Age: 74 Year
  Sex: Female

DRUGS (2)
  1. FORTEO [Suspect]
     Active Substance: TERIPARATIDE
     Indication: OSTEOPOROSIS
     Dosage: 20 UG, QD
     Route: 058
     Dates: start: 2012
  2. FORTEO [Suspect]
     Active Substance: TERIPARATIDE
     Dosage: 20 UG, QD
     Route: 058
     Dates: end: 2012

REACTIONS (11)
  - Skin reaction [Not Recovered/Not Resolved]
  - Paraesthesia [Not Recovered/Not Resolved]
  - Intentional product misuse [Unknown]
  - Fear [Not Recovered/Not Resolved]
  - Chest discomfort [Recovered/Resolved]
  - Urticaria [Unknown]
  - Feeling hot [Not Recovered/Not Resolved]
  - Dizziness [Recovered/Resolved]
  - Skin reaction [Recovered/Resolved]
  - Injection site erythema [Unknown]
  - Feeling abnormal [Recovered/Resolved]

NARRATIVE: CASE EVENT DATE: 20120910
